FAERS Safety Report 6255240-6 (Version None)
Quarter: 2009Q3

REPORT INFORMATION
  Report Type: 
  Country: None (occurrence: None)
  Receive Date: 20090702
  Receipt Date: 20090629
  Transmission Date: 20100115
  Serious: Yes (Death, Other)
  Sender: FDA-Public Use
  Company Number: NL-ROXANE LABORATORIES, INC.-2009-RO-00621RO

PATIENT
  Age: 3 Year
  Sex: Female

DRUGS (15)
  1. CYCLOPHOSPHAMIDE [Suspect]
     Indication: ACUTE LYMPHOCYTIC LEUKAEMIA
  2. FLUCONAZOLE [Suspect]
     Indication: ANTIFUNGAL PROPHYLAXIS
  3. CHEMOTHERAPY [Suspect]
     Indication: ACUTE LYMPHOCYTIC LEUKAEMIA
  4. CIPROFLOXACIN HCL [Suspect]
     Indication: ANTIBIOTIC PROPHYLAXIS
  5. COTRIM [Suspect]
     Indication: ANTIFUNGAL PROPHYLAXIS
  6. INSULIN [Suspect]
     Indication: HYPERGLYCAEMIA
  7. VANCOMYCIN [Suspect]
     Indication: EVIDENCE BASED TREATMENT
  8. CEFTAZIDIME [Suspect]
     Indication: EVIDENCE BASED TREATMENT
  9. VORICONAZOLE [Suspect]
     Indication: SINUSITIS ASPERGILLUS
     Route: 042
  10. VORICONAZOLE [Suspect]
     Dosage: 20 ML
     Route: 061
  11. VORICONAZOLE [Suspect]
  12. NEUPOGEN [Suspect]
     Indication: NEUTROPENIA
  13. CASPOFUNGIN [Suspect]
     Indication: SINUSITIS ASPERGILLUS
  14. CASPOFUNGIN [Suspect]
  15. DAUNORUBICIN HCL [Suspect]
     Indication: ACUTE LYMPHOCYTIC LEUKAEMIA

REACTIONS (9)
  - BRAIN STEM INFARCTION [None]
  - C-REACTIVE PROTEIN INCREASED [None]
  - CEREBRAL ASPERGILLOSIS [None]
  - CEREBRAL HAEMORRHAGE [None]
  - FEBRILE NEUTROPENIA [None]
  - HYPERGLYCAEMIA [None]
  - LABORATORY TEST ABNORMAL [None]
  - MYCOTIC ANEURYSM [None]
  - SINUSITIS ASPERGILLUS [None]
